FAERS Safety Report 17221549 (Version 1)
Quarter: 2020Q1

REPORT INFORMATION
  Report Type: Spontaneous
  Country: DE (occurrence: DE)
  Receive Date: 20200101
  Receipt Date: 20200101
  Transmission Date: 20200409
  Serious: Yes (Other)
  Sender: FDA-Public Use
  Company Number: DE-DEXPHARM-20191214

PATIENT
  Age: 1 Day
  Sex: Male
  Weight: 3.66 kg

DRUGS (2)
  1. L-THYROXIN [Concomitant]
     Active Substance: LEVOTHYROXINE SODIUM
     Indication: HYPOTHYROIDISM
     Dosage: 75 [?G/D]
     Route: 064
     Dates: start: 20180918, end: 20190605
  2. VENLAFAXINE [Suspect]
     Active Substance: VENLAFAXINE HYDROCHLORIDE
     Indication: DEPRESSION
     Dosage: 75 [MG/D]
     Route: 064
     Dates: start: 20180918, end: 20190605

REACTIONS (1)
  - Myoclonus [Recovered/Resolved]
